FAERS Safety Report 9374912 (Version 2)
Quarter: 2013Q3

REPORT INFORMATION
  Report Type: Spontaneous
  Country: EC (occurrence: EC)
  Receive Date: 20130628
  Receipt Date: 20130729
  Transmission Date: 20140515
  Serious: Yes (Other)
  Sender: FDA-Public Use
  Company Number: EC-PFIZER INC-2013189960

PATIENT
  Age: 89 Year
  Sex: Male

DRUGS (2)
  1. NORVASC [Suspect]
     Indication: HYPERTENSION
     Dosage: 5 MG, 3X/DAY
     Route: 048
     Dates: start: 2011, end: 2011
  2. NORVASC [Suspect]
     Indication: CARDIOVASCULAR EVENT PROPHYLAXIS

REACTIONS (3)
  - Cardiogenic shock [Recovered/Resolved]
  - Choking sensation [Recovered/Resolved]
  - Drug ineffective [Recovered/Resolved]
